FAERS Safety Report 4277911-3 (Version None)
Quarter: 2004Q1

REPORT INFORMATION
  Report Type: 
  Country: None (occurrence: None)
  Receive Date: 20040123
  Receipt Date: 20031024
  Transmission Date: 20041129
  Serious: Yes (Other)
  Sender: FDA-Public Use
  Company Number: BE-GLAXOSMITHKLINE-B0313210A

PATIENT
  Age: 53 Year
  Sex: Female

DRUGS (3)
  1. AUGMENTIN [Suspect]
     Indication: BRONCHITIS
     Dosage: 875MG TWICE PER DAY
     Route: 048
     Dates: start: 20031002, end: 20031004
  2. GLUCOSAMINE [Concomitant]
     Route: 065
  3. ACETYLCYSTEINE [Concomitant]
     Route: 065

REACTIONS (7)
  - ABDOMINAL PAIN UPPER [None]
  - ANOREXIA [None]
  - DIZZINESS [None]
  - HYPOTENSION [None]
  - NAUSEA [None]
  - PALLOR [None]
  - SYNCOPE VASOVAGAL [None]
